FAERS Safety Report 6879274-3 (Version None)
Quarter: 2010Q3

REPORT INFORMATION
  Report Type: 
  Country: None (occurrence: None)
  Receive Date: 20100728
  Receipt Date: 20100310
  Transmission Date: 20110219
  Serious: No
  Sender: FDA-Public Use
  Company Number: US-ABBOTT-10P-163-0619943-00

PATIENT
  Sex: Female
  Weight: 113.5 kg

DRUGS (2)
  1. SYNTHROID [Suspect]
     Indication: THYROIDECTOMY
     Route: 048
     Dates: start: 20091101
  2. UNKNOWN BLOOD PRESSURE MEDICATION [Concomitant]
     Indication: HYPERTENSION
     Dates: start: 19900101

REACTIONS (1)
  - BLOOD THYROID STIMULATING HORMONE DECREASED [None]
